FAERS Safety Report 4303406-4 (Version None)
Quarter: 2004Q1

REPORT INFORMATION
  Report Type: 
  Country: None (occurrence: None)
  Receive Date: 20040224
  Receipt Date: 20030429
  Transmission Date: 20041129
  Serious: Yes (Hospitalization, Disabling)
  Sender: FDA-Public Use
  Company Number: WAES 0304GBR00211

PATIENT
  Age: 43 Year
  Sex: Female
  Weight: 46 kg

DRUGS (3)
  1. FLUOXETINE [Concomitant]
     Indication: DEPRESSION
     Dates: start: 20010101
  2. ZOCOR [Suspect]
     Indication: BLOOD CHOLESTEROL INCREASED
     Route: 048
     Dates: start: 20030101
  3. ZOCOR [Suspect]
     Indication: MULTIPLE SCLEROSIS
     Route: 048
     Dates: start: 20030101

REACTIONS (1)
  - MULTIPLE SCLEROSIS RELAPSE [None]
